FAERS Safety Report 12887757 (Version 1)
Quarter: 2016Q4

REPORT INFORMATION
  Report Type: Other
  Country: GB (occurrence: CN)
  Receive Date: 20161027
  Receipt Date: 20161027
  Transmission Date: 20170207
  Serious: Yes (Life-Threatening, Other)
  Sender: FDA-Public Use
  Company Number: CN-INTERNATIONAL MEDICATION SYSTEMS, LIMITED-1058926

PATIENT
  Age: 35 Year
  Sex: Male

DRUGS (3)
  1. EPINEPHRINE. [Suspect]
     Active Substance: EPINEPHRINE
  2. NOREPINEPHRINE [Suspect]
     Active Substance: NOREPINEPHRINE\NOREPINEPHRINE BITARTRATE
  3. VASOPRESSIN. [Suspect]
     Active Substance: VASOPRESSIN

REACTIONS (1)
  - Therapy non-responder [Unknown]
